FAERS Safety Report 20617364 (Version 7)
Quarter: 2025Q1

REPORT INFORMATION
  Report Type: Spontaneous
  Country: US (occurrence: US)
  Receive Date: 20220321
  Receipt Date: 20250305
  Transmission Date: 20250408
  Serious: Yes (Other)
  Sender: PFIZER
  Company Number: US-PFIZER INC-202200376786

PATIENT
  Age: 71 Year
  Sex: Female

DRUGS (11)
  1. XELJANZ XR [Suspect]
     Active Substance: TOFACITINIB CITRATE
     Indication: Rheumatoid arthritis
     Dosage: 11 MG, 1X/DAY
     Route: 048
     Dates: start: 2014
  2. MELOXICAM [Concomitant]
     Active Substance: MELOXICAM
  3. ASPIRIN [Concomitant]
     Active Substance: ASPIRIN
  4. CO Q 10 [UBIDECARENONE] [Concomitant]
  5. CALCIUM\VITAMIN D [Concomitant]
     Active Substance: CALCIUM\VITAMIN D
  6. GLUCOSAMINE [Concomitant]
     Active Substance: GLUCOSAMINE
  7. LOSARTAN POTASSIUM [Concomitant]
     Active Substance: LOSARTAN POTASSIUM
  8. IBUPROFEN [Concomitant]
     Active Substance: IBUPROFEN
  9. FOLIC ACID [Concomitant]
     Active Substance: FOLIC ACID
  10. FOSAMAX [Concomitant]
     Active Substance: ALENDRONATE SODIUM
  11. PREDNISONE [Concomitant]
     Active Substance: PREDNISONE

REACTIONS (7)
  - Joint swelling [Recovering/Resolving]
  - Mental disorder [Unknown]
  - Arthralgia [Unknown]
  - Joint injury [Unknown]
  - Joint range of motion decreased [Unknown]
  - Depression [Unknown]
  - Bone density decreased [Unknown]

NARRATIVE: CASE EVENT DATE: 20140101
